FAERS Safety Report 18784643 (Version 2)
Quarter: 2021Q1

REPORT INFORMATION
  Report Type: Report from Study
  Country: US (occurrence: US)
  Receive Date: 20210126
  Receipt Date: 20210223
  Transmission Date: 20210419
  Serious: Yes (Other)
  Sender: FDA-Public Use
  Company Number: US-PFIZER INC-2020328643

PATIENT
  Age: 60 Year
  Sex: Female

DRUGS (1)
  1. IBRANCE [Suspect]
     Active Substance: PALBOCICLIB
     Indication: BREAST CANCER FEMALE
     Dosage: 125 MG, CYCLIC (ONCE DAILY, CYCLE: 21 DAYS ON, 7 DAYS OFF)
     Route: 048
     Dates: start: 20200822

REACTIONS (17)
  - Burning sensation [Unknown]
  - Decreased appetite [Unknown]
  - Dry mouth [Unknown]
  - Lip swelling [Unknown]
  - Hypotension [Unknown]
  - Somnolence [Unknown]
  - Nausea [Unknown]
  - White blood cell count decreased [Recovering/Resolving]
  - Neuropathy peripheral [Unknown]
  - Leukopenia [Unknown]
  - Pain in extremity [Unknown]
  - Blood glucose increased [Unknown]
  - Urinary tract infection [Unknown]
  - Alopecia [Unknown]
  - Platelet count decreased [Unknown]
  - Skin mass [Recovered/Resolved]
  - Dizziness [Recovering/Resolving]

NARRATIVE: CASE EVENT DATE: 202008
